FAERS Safety Report 18386569 (Version 1)
Quarter: 2020Q4

REPORT INFORMATION
  Report Type: Spontaneous
  Country: US (occurrence: US)
  Receive Date: 20201014
  Receipt Date: 20201014
  Transmission Date: 20210114
  Serious: Yes (Disabling)
  Sender: FDA-Public Use
  Company Number: None

PATIENT
  Age: 41 Year
  Sex: Female
  Weight: 58.97 kg

DRUGS (2)
  1. METHIMAZOLE. [Concomitant]
     Active Substance: METHIMAZOLE
  2. MIRENA [Suspect]
     Active Substance: LEVONORGESTREL

REACTIONS (13)
  - Hair growth rate abnormal [None]
  - Alopecia [None]
  - Brain neoplasm [None]
  - Feeling abnormal [None]
  - Muscular weakness [None]
  - Anxiety [None]
  - Fatigue [None]
  - Acne [None]
  - Headache [None]
  - Mental disorder [None]
  - Emotional disorder [None]
  - General physical condition abnormal [None]
  - Impaired work ability [None]

NARRATIVE: CASE EVENT DATE: 20170801
